FAERS Safety Report 9717929 (Version 1)
Quarter: 2013Q4

REPORT INFORMATION
  Report Type: Spontaneous
  Country: US (occurrence: US)
  Receive Date: 20131127
  Receipt Date: 20131127
  Transmission Date: 20140711
  Serious: Yes (Other)
  Sender: FDA-Public Use
  Company Number: US-PFIZER INC-2013338680

PATIENT
  Age: 55 Year
  Sex: Male
  Weight: 113.4 kg

DRUGS (5)
  1. MOTRIN [Suspect]
     Indication: FIBROMYALGIA
     Dosage: UNK
     Route: 065
     Dates: start: 2013
  2. XARELTO [Suspect]
     Indication: HIP ARTHROPLASTY
     Dosage: 10 MG, 1X/DAY
     Route: 048
     Dates: start: 2013, end: 20131007
  3. LOTENSIN [Concomitant]
     Indication: BLOOD PRESSURE
     Route: 048
  4. LEVOTHYROXINE [Concomitant]
     Indication: HYPOTHYROIDISM
     Dosage: 200 UG, 1X/DAY
     Route: 048
  5. ASPIRIN [Concomitant]
     Indication: CEREBROVASCULAR ACCIDENT
     Route: 048

REACTIONS (9)
  - Irritable bowel syndrome [Recovered/Resolved]
  - Hypersensitivity [Unknown]
  - Oral discomfort [Unknown]
  - Nasal discomfort [Unknown]
  - Eye swelling [Unknown]
  - Pruritus [Unknown]
  - Nausea [Recovered/Resolved]
  - Feeling abnormal [Unknown]
  - Stress [Unknown]
